FAERS Safety Report 4448805-5 (Version None)
Quarter: 2004Q3

REPORT INFORMATION
  Report Type: 
  Country: None (occurrence: None)
  Receive Date: 20040909
  Receipt Date: 20040825
  Transmission Date: 20050211
  Serious: No
  Sender: FDA-Public Use
  Company Number: 2004GB02064

PATIENT
  Sex: Female

DRUGS (4)
  1. SEROQUEL [Suspect]
     Dosage: 25 MG QD PO
     Route: 048
  2. SEROQUEL [Suspect]
     Dosage: 25 MG BID PO
     Route: 048
  3. RISPERIDONE [Suspect]
     Dosage: 500 MG BID
  4. RISPERIDONE [Suspect]
     Dosage: 500 MG QD

REACTIONS (7)
  - DRUG INTERACTION [None]
  - DYSKINESIA [None]
  - EATING DISORDER [None]
  - EMOTIONAL DISTRESS [None]
  - PARANOIA [None]
  - TONGUE DISORDER [None]
  - TREMOR [None]
